FAERS Safety Report 8549033-4 (Version None)
Quarter: 2012Q3

REPORT INFORMATION
  Report Type: 
  Country: None (occurrence: None)
  Receive Date: 20120730
  Receipt Date: 20120720
  Transmission Date: 20120928
  Serious: No
  Sender: FDA-Public Use
  Company Number: US-BAYER-2012-073752

PATIENT
  Sex: Female

DRUGS (4)
  1. ALEVE (CAPLET) [Suspect]
     Indication: HEADACHE
     Route: 048
  2. ASPIRIN [Suspect]
     Indication: HEADACHE
     Route: 048
  3. TYLENOL (CAPLET) [Concomitant]
     Indication: HEADACHE
  4. GOODY POWDER [Concomitant]
     Indication: HEADACHE

REACTIONS (1)
  - MIGRAINE [None]
